FAERS Safety Report 8151235-6 (Version None)
Quarter: 2012Q1

REPORT INFORMATION
  Report Type: 
  Country: None (occurrence: None)
  Receive Date: 20120220
  Receipt Date: 20120213
  Transmission Date: 20120608
  Serious: Yes (Other)
  Sender: FDA-Public Use
  Company Number: PHHY2012CA011283

PATIENT
  Sex: Female
  Weight: 62.7 kg

DRUGS (9)
  1. CALCIUM [Concomitant]
     Dosage: 1025 U, UNK
     Dates: start: 20080313, end: 20090504
  2. VITAMIN D [Concomitant]
     Dosage: 2000 IU, UNK
     Dates: start: 20111124
  3. ZOLEDRONOC ACID [Suspect]
     Dosage: 5 MG/100 ML
     Route: 042
     Dates: start: 20100208
  4. FLOVENT [Concomitant]
     Dosage: UNK UKN, PRN
  5. CALCIUM [Concomitant]
     Dosage: 600 IUX 3
     Dates: start: 20090504
  6. PANTOPRAZOLE [Concomitant]
  7. ZOLEDRONOC ACID [Suspect]
     Indication: OSTEOPOROSIS
     Dosage: 5 MG/100 ML
     Route: 042
     Dates: start: 20090223
  8. VITAMIN D [Concomitant]
     Dosage: 1000 IU, UNK
     Dates: start: 20080313, end: 20111124
  9. ZOLEDRONOC ACID [Suspect]
     Dosage: 5 MG/100 ML
     Route: 042
     Dates: start: 20110208

REACTIONS (6)
  - FOOT FRACTURE [None]
  - FRACTURED SACRUM [None]
  - FIBULA FRACTURE [None]
  - LOWER LIMB FRACTURE [None]
  - FRACTURED COCCYX [None]
  - FALL [None]
